FAERS Safety Report 6722610-9 (Version None)
Quarter: 2010Q2

REPORT INFORMATION
  Report Type: 
  Country: None (occurrence: None)
  Receive Date: 20100512
  Receipt Date: 20100503
  Transmission Date: 20101027
  Serious: Yes (Hospitalization, Other)
  Sender: FDA-Public Use
  Company Number: JP-PFIZER INC-2010058230

PATIENT
  Age: 58 Year
  Sex: Male
  Weight: 67 kg

DRUGS (3)
  1. SUNITINIB MALATE [Suspect]
     Indication: RENAL CELL CARCINOMA
     Dosage: 50 MG, 1X/DAY
     Route: 048
     Dates: start: 20091021
  2. OLMESARTAN MEDOXOMIL [Concomitant]
     Dosage: UNK
     Route: 048
  3. PASTARON [Concomitant]
     Dosage: UNK
     Route: 062
     Dates: start: 20091021

REACTIONS (4)
  - HYPERLIPIDAEMIA [None]
  - HYPERTENSION [None]
  - LEUKOPENIA [None]
  - THROMBOCYTOPENIA [None]
